FAERS Safety Report 4667072-0 (Version None)
Quarter: 2005Q2

REPORT INFORMATION
  Report Type: 
  Country: None (occurrence: None)
  Receive Date: 20050520
  Receipt Date: 20050207
  Transmission Date: 20051028
  Serious: Yes (Other)
  Sender: FDA-Public Use
  Company Number: PHBS2005BE02085

PATIENT
  Age: 58 Year
  Sex: Female

DRUGS (9)
  1. EPIRUBICIN [Concomitant]
     Dates: start: 20030101, end: 20030401
  2. TAXOTERE [Concomitant]
     Dates: start: 20030101, end: 20030401
  3. XELODA [Concomitant]
     Dates: start: 20030401, end: 20040101
  4. NOVANTRONE [Concomitant]
     Dates: start: 20040204, end: 20041001
  5. TAMOXIFEN [Concomitant]
     Route: 065
     Dates: start: 20041001
  6. CONTRAMAL [Concomitant]
     Route: 065
     Dates: start: 20030101
  7. FRAXIPARINE [Concomitant]
     Route: 065
     Dates: start: 20030101
  8. TEMESTA [Concomitant]
     Route: 065
     Dates: start: 20030101
  9. ZOMETA [Suspect]
     Indication: METASTASES TO BONE
     Dates: start: 20030101

REACTIONS (9)
  - BONE DISORDER [None]
  - OEDEMA MUCOSAL [None]
  - OSTEITIS [None]
  - OSTEOMYELITIS CHRONIC [None]
  - OSTEOTOMY [None]
  - PAIN [None]
  - PLASTIC SURGERY TO THE FACE [None]
  - SEQUESTRECTOMY [None]
  - WOUND DEBRIDEMENT [None]
